FAERS Safety Report 8465604-8 (Version None)
Quarter: 2012Q2

REPORT INFORMATION
  Report Type: 
  Country: None (occurrence: None)
  Receive Date: 20120323
  Receipt Date: 20111014
  Transmission Date: 20120825
  Serious: Yes (Hospitalization)
  Sender: FDA-Public Use
  Company Number: 163-21880-11101809

PATIENT
  Age: 51 Year
  Sex: Male

DRUGS (12)
  1. REVLIMID [Suspect]
     Indication: MULTIPLE MYELOMA
     Dosage: 10 MG, 1 IN 1 D, PO 25 MG, 1 IN 1 D, PO 10 MG, DAILY X 21 DAYS, OFF 7 DAYS, PO
     Route: 048
     Dates: start: 20100801
  2. REVLIMID [Suspect]
     Indication: MULTIPLE MYELOMA
     Dosage: 10 MG, 1 IN 1 D, PO 25 MG, 1 IN 1 D, PO 10 MG, DAILY X 21 DAYS, OFF 7 DAYS, PO
     Route: 048
     Dates: start: 20081001
  3. REVLIMID [Suspect]
     Indication: MULTIPLE MYELOMA
     Dosage: 10 MG, 1 IN 1 D, PO 25 MG, 1 IN 1 D, PO 10 MG, DAILY X 21 DAYS, OFF 7 DAYS, PO
     Route: 048
     Dates: start: 20081101
  4. COUMADIN [Concomitant]
  5. ONDANSETRON (ONDANSETRON) (UNKNOWN) [Concomitant]
  6. FENTANYL [Concomitant]
  7. NEURONTIN [Concomitant]
  8. MORPHINE SULFATE [Concomitant]
  9. CLONAZEPAM [Concomitant]
  10. FLOMAX (TAMSULOSIN) (UNKNOWN) [Concomitant]
  11. PROCHLORPERAZINE (PROCHLORPERAZINE) (UNKNOWN) [Concomitant]
  12. PREDNISONE [Concomitant]

REACTIONS (4)
  - CONSTIPATION [None]
  - DEHYDRATION [None]
  - DIARRHOEA [None]
  - VOMITING [None]
